FAERS Safety Report 20922359 (Version 1)
Quarter: 2022Q2

REPORT INFORMATION
  Report Type: Spontaneous
  Country: US (occurrence: US)
  Receive Date: 20220607
  Receipt Date: 20220607
  Transmission Date: 20220720
  Serious: Yes (Hospitalization, Other)
  Sender: FDA-Public Use
  Company Number: US-BoehringerIngelheim-2022-BI-174667

PATIENT
  Sex: Male

DRUGS (2)
  1. SPIRIVA [Suspect]
     Active Substance: TIOTROPIUM BROMIDE MONOHYDRATE
     Indication: Product used for unknown indication
     Route: 065
  2. SPIRIVA RESPIMAT [Suspect]
     Active Substance: TIOTROPIUM BROMIDE
     Indication: Product used for unknown indication
     Route: 065

REACTIONS (4)
  - Pneumothorax [Recovering/Resolving]
  - Pneumothorax [Recovering/Resolving]
  - Inappropriate schedule of product administration [Unknown]
  - Sleep deficit [Not Recovered/Not Resolved]

NARRATIVE: CASE EVENT DATE: 20220101
